FAERS Safety Report 6720772-0 (Version None)
Quarter: 2010Q2

REPORT INFORMATION
  Report Type: 
  Country: None (occurrence: None)
  Receive Date: 20100512
  Receipt Date: 20100503
  Transmission Date: 20101027
  Serious: No
  Sender: FDA-Public Use
  Company Number: US-BIOGENIDEC-2010BI012442

PATIENT
  Age: 26 Year
  Sex: Female

DRUGS (2)
  1. TYSABRI [Suspect]
     Indication: MULTIPLE SCLEROSIS
     Route: 042
     Dates: start: 20080903
  2. ANTIBIOTIC (NOS) [Concomitant]
     Dates: start: 20100401

REACTIONS (3)
  - ADVERSE DRUG REACTION [None]
  - SINUS DISORDER [None]
  - URTICARIA [None]
